FAERS Safety Report 10887172 (Version 1)
Quarter: 2015Q1

REPORT INFORMATION
  Report Type: Spontaneous
  Country: US (occurrence: US)
  Receive Date: 20150304
  Receipt Date: 20150304
  Transmission Date: 20150721
  Serious: No
  Sender: FDA-Public Use
  Company Number: US-GLAXOSMITHKLINE-US2015GSK028824

PATIENT
  Sex: Female

DRUGS (5)
  1. MEKINIST [Suspect]
     Active Substance: TRAMETINIB DIMETHYL SULFOXIDE
     Indication: PRODUCT USED FOR UNKNOWN INDICATION
     Dosage: 2 MG, QD
     Route: 048
  2. FAMOTIDINE. [Concomitant]
     Active Substance: FAMOTIDINE
  3. ADVIL [Concomitant]
     Active Substance: IBUPROFEN
  4. TOPAMAX [Concomitant]
     Active Substance: TOPIRAMATE
  5. GAS-X [Concomitant]
     Active Substance: DIMETHICONE

REACTIONS (3)
  - Skin infection [Unknown]
  - Skin reaction [Unknown]
  - Alopecia [Unknown]
